FAERS Safety Report 10749771 (Version 4)
Quarter: 2017Q1

REPORT INFORMATION
  Report Type: Report from Study
  Country: US (occurrence: US)
  Receive Date: 20150129
  Receipt Date: 20170313
  Transmission Date: 20170428
  Serious: Yes (Hospitalization)
  Sender: FDA-Public Use
  Company Number: US-GLAXOSMITHKLINE-US2015010632

PATIENT
  Age: 71 Year
  Sex: Male
  Weight: 84.4 kg

DRUGS (4)
  1. PALBOCICLIB [Suspect]
     Active Substance: PALBOCICLIB
     Indication: NEOPLASM
     Dosage: 100 MG, 21 DAYS ON/7 DAYS OFF
     Route: 048
     Dates: start: 20150107
  2. TRAMETINIB [Suspect]
     Active Substance: TRAMETINIB
     Indication: NEOPLASM
     Dosage: 2.0 MG, QD
     Route: 048
     Dates: start: 20150107
  3. HYDROCORTISONE. [Concomitant]
     Active Substance: HYDROCORTISONE
     Indication: FATIGUE
     Route: 042
     Dates: start: 20150126, end: 20150128
  4. HYDROCORTISONE. [Concomitant]
     Active Substance: HYDROCORTISONE
     Indication: MALAISE

REACTIONS (1)
  - Fatigue [Recovered/Resolved]

NARRATIVE: CASE EVENT DATE: 20150124
